FAERS Safety Report 8139707-1 (Version None)
Quarter: 2012Q1

REPORT INFORMATION
  Report Type: 
  Country: None (occurrence: None)
  Receive Date: 20120215
  Receipt Date: 20120210
  Transmission Date: 20120608
  Serious: Yes (Death, Hospitalization, Other)
  Sender: FDA-Public Use
  Company Number: PHEH2005US01512

PATIENT
  Sex: Female
  Weight: 163 kg

DRUGS (7)
  1. AREDIA [Suspect]
     Indication: BONE LOSS
     Dates: end: 20030909
  2. TAMOXIFEN CITRATE [Concomitant]
  3. METOCLOPRAMIDE [Concomitant]
     Dosage: 12.5 MG, BID
     Route: 048
  4. FERROUS SULFATE TAB [Concomitant]
     Dosage: 45 MG, QD
     Route: 048
  5. PROCRIT                            /00909301/ [Concomitant]
  6. ZOMETA [Suspect]
     Indication: BREAST CANCER
  7. CLINDAMYCIN [Concomitant]
     Dosage: 150 MG, UNK
     Dates: start: 20050901

REACTIONS (52)
  - LACUNAR INFARCTION [None]
  - OPEN WOUND [None]
  - BLOOD CREATININE INCREASED [None]
  - MUSCULOSKELETAL PAIN [None]
  - OSTEONECROSIS OF JAW [None]
  - SWELLING FACE [None]
  - INJURY [None]
  - ANAEMIA [None]
  - GAIT DISTURBANCE [None]
  - SKIN ULCER [None]
  - CONFUSIONAL STATE [None]
  - FALL [None]
  - BONE DISORDER [None]
  - AORTIC CALCIFICATION [None]
  - OSTEITIS [None]
  - DEATH [None]
  - INFLAMMATION [None]
  - ARTERIOSCLEROSIS [None]
  - HYPERTENSION [None]
  - BONE NEOPLASM MALIGNANT [None]
  - LOW DENSITY LIPOPROTEIN INCREASED [None]
  - GENERAL PHYSICAL CONDITION ABNORMAL [None]
  - INTERVERTEBRAL DISC DEGENERATION [None]
  - ARRHYTHMIA [None]
  - URINARY INCONTINENCE [None]
  - DISORIENTATION [None]
  - ARTERIOSCLEROSIS CORONARY ARTERY [None]
  - BLOOD TRIGLYCERIDES INCREASED [None]
  - BLOOD UREA INCREASED [None]
  - HAEMOGLOBIN DECREASED [None]
  - ANXIETY [None]
  - SMEAR CERVIX ABNORMAL [None]
  - ANKLE FRACTURE [None]
  - SYNCOPE [None]
  - MULTIPLE MYELOMA [None]
  - ASTHENIA [None]
  - SWELLING [None]
  - LIMB INJURY [None]
  - PAIN IN JAW [None]
  - DENTAL FISTULA [None]
  - RIB FRACTURE [None]
  - INTERVERTEBRAL DISC COMPRESSION [None]
  - MITRAL VALVE PROLAPSE [None]
  - BLOOD GLUCOSE INCREASED [None]
  - LYMPHOCYTE COUNT DECREASED [None]
  - PAIN [None]
  - DEMENTIA ALZHEIMER'S TYPE [None]
  - HAND FRACTURE [None]
  - FAECAL INCONTINENCE [None]
  - BONE LESION [None]
  - RED BLOOD CELL COUNT DECREASED [None]
  - HAEMATOCRIT DECREASED [None]
